FAERS Safety Report 8216200-9 (Version None)
Quarter: 2012Q1

REPORT INFORMATION
  Report Type: 
  Country: None (occurrence: None)
  Receive Date: 20120316
  Receipt Date: 20120123
  Transmission Date: 20120608
  Serious: Yes (Disabling, Other)
  Sender: FDA-Public Use
  Company Number: GB-GLAXOSMITHKLINE-B0748340A

PATIENT
  Sex: Female

DRUGS (7)
  1. BECOTIDE DISKHALER [Concomitant]
     Indication: ASTHMA
  2. MODURETIC 5-50 [Concomitant]
     Indication: OEDEMA PERIPHERAL
     Route: 048
  3. VENTOLIN [Suspect]
     Indication: ASTHMA
     Dosage: 2.5MG FOUR TIMES PER DAY
     Route: 055
     Dates: start: 20110801
  4. VENTOLIN ACCUHALER [Concomitant]
     Indication: ASTHMA
  5. SLO-PHYLLIN [Concomitant]
     Indication: ASTHMA
     Dosage: 250MG PER DAY
     Route: 048
  6. PHENERGAN [Concomitant]
     Indication: PRURITUS
     Dosage: 25MG AT NIGHT
     Route: 048
  7. AMPICILLIN [Concomitant]
     Indication: INFECTION
     Dosage: 500MG FOUR TIMES PER DAY
     Route: 048

REACTIONS (7)
  - PRODUCT QUALITY ISSUE [None]
  - ABDOMINAL PAIN UPPER [None]
  - ORAL PAIN [None]
  - LIP PAIN [None]
  - NAUSEA [None]
  - HEADACHE [None]
  - DIZZINESS [None]
